FAERS Safety Report 26064928 (Version 3)
Quarter: 2025Q4

REPORT INFORMATION
  Report Type: Spontaneous
  Country: BR (occurrence: BR)
  Receive Date: 20251119
  Receipt Date: 20251216
  Transmission Date: 20260118
  Serious: Yes (Other)
  Sender: PFIZER
  Company Number: BR-PFIZER INC-PV202500135538

PATIENT
  Age: 30 Year
  Sex: Female

DRUGS (2)
  1. TALIGLUCERASE ALFA [Suspect]
     Active Substance: TALIGLUCERASE ALFA
     Indication: Gaucher^s disease
     Dosage: 18 IU/KG, EVERY 15 DAYS
     Dates: start: 20160616
  2. TALIGLUCERASE ALFA [Suspect]
     Active Substance: TALIGLUCERASE ALFA
     Dosage: 18 IU/KG, EVERY 15 DAYS
     Dates: start: 20251108

REACTIONS (5)
  - Cholelithiasis [Recovering/Resolving]
  - Abdominal discomfort [Recovering/Resolving]
  - Suffocation feeling [Recovering/Resolving]
  - Aphonia [Recovering/Resolving]
  - Dyspnoea [Recovering/Resolving]

NARRATIVE: CASE EVENT DATE: 20251109
